FAERS Safety Report 24384012 (Version 1)
Quarter: 2024Q4

REPORT INFORMATION
  Report Type: Spontaneous
  Country: US (occurrence: US)
  Receive Date: 20241001
  Receipt Date: 20241001
  Transmission Date: 20250114
  Serious: No
  Sender: ROCHE
  Company Number: US-ROCHE-10000091791

PATIENT
  Age: 31 Year
  Sex: Female
  Weight: 64.41 kg

DRUGS (1)
  1. XOLAIR [Suspect]
     Active Substance: OMALIZUMAB
     Indication: Idiopathic urticaria
     Route: 058

REACTIONS (3)
  - Product dose omission issue [Unknown]
  - Asthma [Unknown]
  - Urticaria [Unknown]

NARRATIVE: CASE EVENT DATE: 20230301
